FAERS Safety Report 5110218-0 (Version None)
Quarter: 2006Q3

REPORT INFORMATION
  Report Type: 
  Country: None (occurrence: None)
  Receive Date: 20060921
  Receipt Date: 20060914
  Transmission Date: 20061208
  Serious: Yes (Other)
  Sender: FDA-Public Use
  Company Number: 2006UW18021

PATIENT

DRUGS (5)
  1. SEROQUEL [Suspect]
     Indication: SCHIZOPHRENIA
     Route: 048
  2. CLOZAPINE [Concomitant]
  3. DEPAKOTE [Concomitant]
  4. PAXIL [Concomitant]
  5. STATIN DRUG [Concomitant]

REACTIONS (2)
  - OBESITY SURGERY [None]
  - WEIGHT INCREASED [None]
